FAERS Safety Report 5268298-8 (Version None)
Quarter: 2007Q1

REPORT INFORMATION
  Report Type: 
  Country: None (occurrence: None)
  Receive Date: 20070313
  Receipt Date: 20070228
  Transmission Date: 20070707
  Serious: Yes (Hospitalization)
  Sender: FDA-Public Use
  Company Number: 2007PV028235

PATIENT
  Age: 62 Year
  Sex: Male
  Weight: 130.6359 kg

DRUGS (2)
  1. SYMLIN [Suspect]
     Indication: DIABETES MELLITUS NON-INSULIN-DEPENDENT
     Dosage: 120 MCG;TID;SC; 60 MCG;TID;SC
     Route: 058
     Dates: start: 20061109, end: 20061116
  2. SYMLIN [Suspect]
     Indication: DIABETES MELLITUS NON-INSULIN-DEPENDENT
     Dosage: 120 MCG;TID;SC; 60 MCG;TID;SC
     Route: 058
     Dates: start: 20061117

REACTIONS (2)
  - EROSIVE OESOPHAGITIS [None]
  - GASTRITIS [None]
